FAERS Safety Report 5260978-3 (Version None)
Quarter: 2007Q1

REPORT INFORMATION
  Report Type: 
  Country: None (occurrence: None)
  Receive Date: 20070306
  Receipt Date: 20070219
  Transmission Date: 20070707
  Serious: Yes (Death, Hospitalization, Other)
  Sender: FDA-Public Use
  Company Number: 2006MP000699

PATIENT
  Age: 32 Year
  Sex: Male

DRUGS (5)
  1. GLIADEL [Suspect]
     Indication: GLIOBLASTOMA MULTIFORME
     Dosage: 61.6 MG;X1;ICER
     Dates: start: 20050317
  2. TEMOZOLOMIDE [Concomitant]
  3. PHENYTOIN [Concomitant]
  4. DEXAMETHASONE [Concomitant]
  5. PANTOPRAZOLE SODIUM [Concomitant]

REACTIONS (4)
  - HYDROCEPHALUS [None]
  - MENINGITIS ASEPTIC [None]
  - POST PROCEDURAL COMPLICATION [None]
  - RECURRENT CANCER [None]
